FAERS Safety Report 7430785-1 (Version None)
Quarter: 2011Q2

REPORT INFORMATION
  Report Type: 
  Country: None (occurrence: None)
  Receive Date: 20110421
  Receipt Date: 20110414
  Transmission Date: 20111010
  Serious: Yes (Hospitalization)
  Sender: FDA-Public Use
  Company Number: BR-ABBOTT-11P-020-0719184-00

PATIENT
  Sex: Male
  Weight: 126 kg

DRUGS (2)
  1. HUMIRA [Suspect]
     Indication: ANKYLOSING SPONDYLITIS
     Route: 058
     Dates: start: 20110101
  2. OMEPRAZOLE [Concomitant]
     Indication: OBESITY SURGERY

REACTIONS (2)
  - ABDOMINAL PAIN [None]
  - PYREXIA [None]
